FAERS Safety Report 9320579 (Version 2)
Quarter: 2013Q3

REPORT INFORMATION
  Report Type: Report from Study
  Country: AU (occurrence: AU)
  Receive Date: 20130531
  Receipt Date: 20130830
  Transmission Date: 20140515
  Serious: Yes (Other)
  Sender: FDA-Public Use
  Company Number: AU-ROCHE-1229161

PATIENT
  Age: 89 Year
  Sex: Female

DRUGS (6)
  1. RANIBIZUMAB [Suspect]
     Indication: AGE-RELATED MACULAR DEGENERATION
     Route: 050
     Dates: start: 20100930
  2. RANIBIZUMAB [Suspect]
     Route: 065
     Dates: start: 201008
  3. RANIBIZUMAB [Suspect]
     Route: 065
     Dates: start: 20101028
  4. ASCORBIC ACID [Concomitant]
  5. TOCOFERSOLAN [Concomitant]
  6. ZINC OXIDE [Concomitant]

REACTIONS (5)
  - Emphysema [Not Recovered/Not Resolved]
  - Diplopia [Not Recovered/Not Resolved]
  - Visual impairment [Not Recovered/Not Resolved]
  - Visual impairment [Not Recovered/Not Resolved]
  - Foreign body sensation in eyes [Recovering/Resolving]
